FAERS Safety Report 15226210 (Version 2)
Quarter: 2018Q3

REPORT INFORMATION
  Report Type: Spontaneous
  Country: BR (occurrence: BR)
  Receive Date: 20180801
  Receipt Date: 20180806
  Transmission Date: 20181010
  Serious: No
  Sender: FDA-Public Use
  Company Number: BR-GLAXOSMITHKLINE-BR2018GSK135956

PATIENT
  Sex: Male
  Weight: 10 kg

DRUGS (2)
  1. FLIXOTIDE (CFC?FREE) [Suspect]
     Active Substance: FLUTICASONE PROPIONATE
     Indication: BRONCHIOLITIS
     Dosage: 2 PUFF(S), BID
     Route: 055
  2. PREDSIM [Concomitant]
     Active Substance: PREDNISOLONE
     Indication: NASOPHARYNGITIS
     Dosage: UNK
     Route: 048

REACTIONS (4)
  - Drug administered to patient of inappropriate age [Not Recovered/Not Resolved]
  - Wheezing [Unknown]
  - Product use in unapproved indication [Not Recovered/Not Resolved]
  - Product prescribing issue [Recovered/Resolved]
